FAERS Safety Report 4340529-8 (Version None)
Quarter: 2004Q2

REPORT INFORMATION
  Report Type: 
  Country: None (occurrence: None)
  Receive Date: 20040414
  Receipt Date: 20040407
  Transmission Date: 20050107
  Serious: Yes (Other)
  Sender: FDA-Public Use
  Company Number: 2004-04-0327

PATIENT
  Sex: Male

DRUGS (5)
  1. INTRON A [Suspect]
     Indication: MALIGNANT MELANOMA
     Dosage: 5XWK INTRAVENOUS
     Route: 042
     Dates: start: 20040329, end: 20040402
  2. ACETAMINOPHEN [Concomitant]
  3. INSULIN [Concomitant]
  4. ENTROPHEN [Concomitant]
  5. PRINIVIL [Concomitant]

REACTIONS (1)
  - BLOOD CREATINE PHOSPHOKINASE INCREASED [None]
